FAERS Safety Report 11767583 (Version 1)
Quarter: 2015Q4

REPORT INFORMATION
  Report Type: Spontaneous
  Country: US (occurrence: US)
  Receive Date: 20151123
  Receipt Date: 20151123
  Transmission Date: 20160304
  Serious: No
  Sender: FDA-Public Use
  Company Number: US-PERRIGO-15US005328

PATIENT
  Age: 61 Year
  Sex: Male
  Weight: 129.25 kg

DRUGS (3)
  1. LEVOCETIRIZINE DIHYDROCHLORIDE. [Suspect]
     Active Substance: LEVOCETIRIZINE DIHYDROCHLORIDE
     Indication: SINUS HEADACHE
     Dosage: 5 MG, 1 TO 2 TIMES DAILY
     Route: 048
     Dates: start: 201409, end: 20150519
  2. LEVOCETIRIZINE DIHYDROCHLORIDE. [Suspect]
     Active Substance: LEVOCETIRIZINE DIHYDROCHLORIDE
     Indication: SEASONAL ALLERGY
  3. LEVOCETIRIZINE DIHYDROCHLORIDE. [Suspect]
     Active Substance: LEVOCETIRIZINE DIHYDROCHLORIDE
     Indication: NASAL CONGESTION

REACTIONS (9)
  - Rash [Recovering/Resolving]
  - Confusional state [Recovering/Resolving]
  - Pain [Recovering/Resolving]
  - Inappropriate schedule of drug administration [Recovered/Resolved]
  - Dyspnoea [Recovering/Resolving]
  - Skin exfoliation [Recovering/Resolving]
  - Skin haemorrhage [Recovering/Resolving]
  - Sinus congestion [Recovering/Resolving]
  - Pruritus [Recovering/Resolving]

NARRATIVE: CASE EVENT DATE: 201409
